FAERS Safety Report 4707024-5 (Version None)
Quarter: 2005Q3

REPORT INFORMATION
  Report Type: 
  Country: None (occurrence: None)
  Receive Date: 20050706
  Receipt Date: 20050628
  Transmission Date: 20060218
  Serious: Yes (Other)
  Sender: FDA-Public Use
  Company Number: PHBS2005BR09354

PATIENT
  Age: 87 Year
  Sex: Female
  Weight: 57 kg

DRUGS (4)
  1. FEMARA [Suspect]
     Indication: BREAST CANCER FEMALE
     Dosage: 2.5 MG, UNK
     Dates: start: 20040301
  2. ARIMIDEX [Suspect]
  3. AROMASIN [Suspect]
  4. TAMOXIFEN [Suspect]

REACTIONS (6)
  - ABNORMAL BEHAVIOUR [None]
  - BODY TEMPERATURE INCREASED [None]
  - MALAISE [None]
  - MORBID THOUGHTS [None]
  - NERVOUSNESS [None]
  - VISUAL ACUITY REDUCED [None]
